FAERS Safety Report 14154681 (Version 9)
Quarter: 2018Q1

REPORT INFORMATION
  Report Type: Report from Study
  Country: None (occurrence: DE)
  Receive Date: 20171102
  Receipt Date: 20180117
  Transmission Date: 20180508
  Serious: Yes (Life-Threatening, Hospitalization, Other)
  Sender: FDA-Public Use
  Company Number: DE-ABBVIE-17P-062-2110590-00

PATIENT
  Age: 46 Year
  Sex: Male
  Weight: 84 kg

DRUGS (22)
  1. AZATHIOPRINE. [Suspect]
     Active Substance: AZATHIOPRINE
     Route: 048
     Dates: start: 20170412, end: 20170419
  2. PREDNISOLON [Concomitant]
     Active Substance: PREDNISOLONE
     Route: 048
     Dates: start: 20150701, end: 20150707
  3. PREDNISOLON [Concomitant]
     Active Substance: PREDNISOLONE
     Route: 048
     Dates: start: 20150715, end: 20150718
  4. MEZAVANT [Concomitant]
     Active Substance: MESALAMINE
     Indication: COLITIS ULCERATIVE
     Route: 048
     Dates: start: 200704, end: 20141216
  5. PREDNISOLON [Concomitant]
     Active Substance: PREDNISOLONE
     Route: 048
     Dates: start: 20150708, end: 20150714
  6. GOLIMUMAB [Concomitant]
     Active Substance: GOLIMUMAB
     Dosage: ALL 4 WEEKS
     Route: 058
     Dates: start: 20170214
  7. AZATHIOPRINE. [Suspect]
     Active Substance: AZATHIOPRINE
     Route: 048
     Dates: start: 20170420, end: 20170427
  8. PREDNISOLON [Concomitant]
     Active Substance: PREDNISOLONE
     Indication: COLITIS ULCERATIVE
     Route: 048
     Dates: start: 20150112, end: 20150313
  9. AZATHIOPRINE. [Suspect]
     Active Substance: AZATHIOPRINE
     Route: 048
     Dates: start: 20170428, end: 20170816
  10. MEZAVANT [Concomitant]
     Active Substance: MESALAMINE
     Route: 048
     Dates: start: 20150707
  11. PREDNISOLON [Concomitant]
     Active Substance: PREDNISOLONE
     Route: 048
     Dates: start: 20170818
  12. PREGABALIN. [Concomitant]
     Active Substance: PREGABALIN
     Indication: NEURALGIA
     Route: 048
     Dates: start: 201607, end: 20170815
  13. GOLIMUMAB [Concomitant]
     Active Substance: GOLIMUMAB
     Indication: COLITIS ULCERATIVE
     Route: 058
     Dates: start: 20170203, end: 20170203
  14. HUMIRA [Suspect]
     Active Substance: ADALIMUMAB
     Indication: COLITIS ULCERATIVE
     Route: 058
     Dates: start: 20130311, end: 20141004
  15. MUCOFALK [Concomitant]
     Route: 048
     Dates: start: 20161121
  16. SALOFALK [Concomitant]
     Active Substance: MESALAMINE
     Indication: COLITIS ULCERATIVE
     Route: 054
     Dates: start: 20160507, end: 20170816
  17. MUCOFALK [Concomitant]
     Indication: COLITIS ULCERATIVE
     Route: 048
     Dates: start: 201307, end: 20161120
  18. MEZAVANT [Concomitant]
     Active Substance: MESALAMINE
     Route: 048
     Dates: start: 20150116, end: 20150628
  19. MEZAVANT [Concomitant]
     Active Substance: MESALAMINE
     Route: 048
     Dates: start: 20150629, end: 20150706
  20. AZATHIOPRINE. [Suspect]
     Active Substance: AZATHIOPRINE
     Indication: COLITIS ULCERATIVE
     Route: 048
     Dates: start: 20170404, end: 20170411
  21. PREDNISOLON [Concomitant]
     Active Substance: PREDNISOLONE
     Route: 048
     Dates: start: 20150719, end: 20150720
  22. PREDNISOLON [Concomitant]
     Active Substance: PREDNISOLONE
     Dosage: 2,5-20 MG
     Route: 048
     Dates: start: 20150721, end: 20151215

REACTIONS (3)
  - Cerebral haemorrhage [Recovered/Resolved]
  - Deep vein thrombosis [Recovered/Resolved]
  - Epilepsy [Not Recovered/Not Resolved]

NARRATIVE: CASE EVENT DATE: 201701
